FAERS Safety Report 15961108 (Version 2)
Quarter: 2019Q2

REPORT INFORMATION
  Report Type: Spontaneous
  Country: US (occurrence: US)
  Receive Date: 20190214
  Receipt Date: 20190402
  Transmission Date: 20190711
  Serious: No
  Sender: FDA-Public Use
  Company Number: US-PFIZER INC-2019064818

PATIENT
  Age: 59 Year
  Sex: Female
  Weight: 112.2 kg

DRUGS (1)
  1. DEMEROL [Suspect]
     Active Substance: MEPERIDINE HYDROCHLORIDE
     Dosage: UNK

REACTIONS (3)
  - Drug hypersensitivity [Unknown]
  - Vomiting [Unknown]
  - Nausea [Unknown]
